FAERS Safety Report 22610739 (Version 1)
Quarter: 2023Q2

REPORT INFORMATION
  Report Type: Report from Study
  Country: US (occurrence: US)
  Receive Date: 20230616
  Receipt Date: 20230616
  Transmission Date: 20230722
  Serious: Yes (Hospitalization, Other)
  Sender: FDA-Public Use
  Company Number: US-TAKEDA-2023TUS058270

PATIENT
  Sex: Female

DRUGS (25)
  1. VELAGLUCERASE ALFA [Suspect]
     Active Substance: VELAGLUCERASE ALFA
     Indication: Gaucher^s disease
     Dosage: 30 INTERNATIONAL UNIT/KILOGRAM, Q2WEEKS
     Route: 065
     Dates: start: 20080613, end: 20110325
  2. VELAGLUCERASE ALFA [Suspect]
     Active Substance: VELAGLUCERASE ALFA
     Dosage: 45 INTERNATIONAL UNIT/KILOGRAM, Q2WEEKS
     Route: 065
     Dates: start: 201103
  3. LISINOPRIL AND HYDROCHLOROTHIAZIDE [Concomitant]
     Active Substance: HYDROCHLOROTHIAZIDE\LISINOPRIL
     Dosage: UNK
     Route: 048
  4. LORAZEPAM [Concomitant]
     Active Substance: LORAZEPAM
     Indication: Muscle spasms
     Dosage: UNK, BID
     Route: 048
     Dates: start: 200411, end: 201409
  5. LITHIUM CARBONATE [Concomitant]
     Active Substance: LITHIUM CARBONATE
     Indication: Bipolar disorder
     Dosage: UNK UNK, QD
     Route: 048
     Dates: start: 200510, end: 201310
  6. OMEPRAZOLE [Concomitant]
     Active Substance: OMEPRAZOLE
     Indication: Gastrooesophageal reflux disease
     Dosage: UNK UNK, QD
     Route: 048
     Dates: start: 200604
  7. CELECOXIB [Concomitant]
     Active Substance: CELECOXIB
     Indication: Osteoarthritis
     Dosage: UNK UNK, BID
     Route: 048
     Dates: start: 200706
  8. PREMARIN [Concomitant]
     Active Substance: ESTROGENS, CONJUGATED
     Indication: Stress urinary incontinence
     Dosage: UNK UNK, 2/WEEK
     Route: 067
     Dates: start: 200812, end: 201311
  9. AMLODIPINE [Concomitant]
     Active Substance: AMLODIPINE BESYLATE
     Indication: Hypertension
     Dosage: UNK UNK, QD
     Route: 048
     Dates: start: 200910, end: 20180123
  10. QUETIAPINE [Concomitant]
     Active Substance: QUETIAPINE
     Indication: Bipolar disorder
     Dosage: UNK UNK, QD
     Route: 048
     Dates: start: 200912
  11. GABAPENTIN;KETOPROFEN;LIDOCAINE [Concomitant]
     Indication: Arthralgia
     Dosage: UNK
     Route: 061
     Dates: start: 201106, end: 20150225
  12. CLONIDINE [Concomitant]
     Active Substance: CLONIDINE
     Indication: Arthralgia
     Dosage: UNK
     Route: 061
     Dates: start: 201303, end: 201309
  13. ESTRADIOL [Concomitant]
     Active Substance: ESTRADIOL
     Indication: Atrophic vulvovaginitis
     Dosage: UNK UNK, QD
     Route: 067
     Dates: start: 20131120
  14. CYCLOBENZAPRINE [Concomitant]
     Active Substance: CYCLOBENZAPRINE
     Indication: Muscle spasms
     Dosage: UNK UNK, QD
     Route: 048
     Dates: start: 201401, end: 20161216
  15. TRIAMCINOLONE ACETONIDE [Concomitant]
     Active Substance: TRIAMCINOLONE ACETONIDE
     Indication: Greater trochanteric pain syndrome
     Dosage: UNK UNK, SINGLE
     Route: 050
     Dates: start: 201406, end: 20140617
  16. ASPIRIN [Concomitant]
     Active Substance: ASPIRIN
     Indication: Cardiovascular disorder
     Dosage: UNK UNK, QD
     Route: 048
     Dates: start: 20141216, end: 20151028
  17. ALBUTEROL [Concomitant]
     Active Substance: ALBUTEROL
     Indication: Bronchitis
     Dosage: UNK
     Route: 055
     Dates: start: 20150129, end: 20150212
  18. BENZONATATE [Concomitant]
     Active Substance: BENZONATATE
     Indication: Cough
     Dosage: UNK UNK, TID
     Route: 048
     Dates: start: 20150129, end: 20150401
  19. AZITHROMYCIN [Concomitant]
     Active Substance: AZITHROMYCIN
     Indication: Bronchitis
     Dosage: UNK UNK, QD
     Route: 048
     Dates: start: 20150129, end: 20150203
  20. PREDNISONE [Concomitant]
     Active Substance: PREDNISONE
     Indication: Bronchitis
     Dosage: UNK UNK, BID
     Route: 048
     Dates: start: 20150201, end: 20150206
  21. DOXYCYCLINE [Concomitant]
     Active Substance: DOXYCYCLINE
     Indication: Bronchitis
     Dosage: UNK UNK, BID
     Route: 048
     Dates: start: 20150201, end: 20150212
  22. NORCO [Concomitant]
     Active Substance: ACETAMINOPHEN\HYDROCODONE BITARTRATE
     Indication: Cough
     Dosage: UNK
     Route: 048
     Dates: start: 20150201, end: 20150518
  23. ESTRACE [Concomitant]
     Active Substance: ESTRADIOL
     Indication: Atrophic vulvovaginitis
     Dosage: UNK
     Route: 067
     Dates: start: 20170703
  24. VITAMIN D2 [Concomitant]
     Active Substance: ERGOCALCIFEROL
     Indication: Vitamin D deficiency
     Dosage: 50000 INTERNATIONAL UNIT, SINGLE
     Route: 048
     Dates: start: 20171211
  25. ACETAMINOPHEN\HYDROCODONE [Concomitant]
     Active Substance: ACETAMINOPHEN\HYDROCODONE
     Indication: Humerus fracture
     Dosage: UNK
     Route: 048
     Dates: start: 20190110

REACTIONS (1)
  - Sinus node dysfunction [Recovered/Resolved]

NARRATIVE: CASE EVENT DATE: 20230612
